FAERS Safety Report 4501898-9 (Version None)
Quarter: 2004Q4

REPORT INFORMATION
  Report Type: 
  Country: None (occurrence: None)
  Receive Date: 20041115
  Receipt Date: 20041115
  Transmission Date: 20050328
  Serious: Yes (Hospitalization)
  Sender: FDA-Public Use
  Company Number: None

PATIENT
  Age: 82 Year
  Sex: Male

DRUGS (2)
  1. GLIPIZIDE [Suspect]
  2. PIOGLITAZONE HCL [Suspect]
     Dosage: 45 MG , 1 TAB QD

REACTIONS (1)
  - HYPOGLYCAEMIA [None]
